FAERS Safety Report 14346507 (Version 1)
Quarter: 2018Q1

REPORT INFORMATION
  Report Type: Spontaneous
  Country: US (occurrence: US)
  Receive Date: 20180103
  Receipt Date: 20180103
  Transmission Date: 20180509
  Serious: Yes (Hospitalization)
  Sender: FDA-Public Use
  Company Number: US-DSJP-DSU-2017-149997

PATIENT

DRUGS (2)
  1. BENICAR [Suspect]
     Active Substance: OLMESARTAN MEDOXOMIL
     Indication: HYPERTENSION
     Dosage: 20 MG, DAILY
     Dates: start: 20100114, end: 20100213
  2. BENICAR HCT [Suspect]
     Active Substance: HYDROCHLOROTHIAZIDE\OLMESARTAN MEDOXOMIL
     Indication: PRODUCT USED FOR UNKNOWN INDICATION
     Dosage: 20/12.5MG DAILY
     Route: 048
     Dates: start: 20100114, end: 20100213

REACTIONS (5)
  - Rectal haemorrhage [Unknown]
  - Anaemia [Unknown]
  - Gastric ulcer [Unknown]
  - Gastritis [Recovering/Resolving]
  - Hiatus hernia [Unknown]

NARRATIVE: CASE EVENT DATE: 20100113
